FAERS Safety Report 24777470 (Version 1)
Quarter: 2024Q4

REPORT INFORMATION
  Report Type: Spontaneous
  Country: ES (occurrence: ES)
  Receive Date: 20241226
  Receipt Date: 20241226
  Transmission Date: 20250114
  Serious: Yes (Other)
  Sender: FRESENIUS KABI
  Company Number: None

PATIENT
  Age: 59 Year
  Sex: Female

DRUGS (3)
  1. PIPERACILLIN AND TAZOBACTAM [Suspect]
     Active Substance: PIPERACILLIN SODIUM\TAZOBACTAM SODIUM
     Indication: Pyelonephritis acute
     Dosage: UNKNOWN
     Dates: start: 20241029, end: 20241107
  2. EUTIROX  75 micrograms tablets, 100 tablets [Concomitant]
     Indication: Product used for unknown indication
     Dosage: FOA: TABLET
     Route: 048
     Dates: start: 20150930
  3. ZOMIG FLAS 2,5 mg BUCODISPERSABLE TABLETS , 6 TABLETS [Concomitant]
     Indication: Product used for unknown indication
     Dosage: FOA: ORODISPERSIBLE TABLET
     Route: 048
     Dates: start: 20151124

REACTIONS (2)
  - Hypertransaminasaemia [Recovering/Resolving]
  - Drug-induced liver injury [Recovering/Resolving]

NARRATIVE: CASE EVENT DATE: 20241107
